FAERS Safety Report 8956469 (Version 1)
Quarter: 2012Q4

REPORT INFORMATION
  Report Type: 
  Country: GB (occurrence: GB)
  Receive Date: 20121210
  Receipt Date: 20121210
  Transmission Date: 20130627
  Serious: Yes (Death, Hospitalization, Other)
  Sender: FDA-Public Use
  Company Number: GB-TEVA-374808ISR

PATIENT
  Age: 55 Year
  Sex: Female

DRUGS (11)
  1. TRIMETHOPRIM [Suspect]
     Indication: PRODUCT USED FOR UNKNOWN INDICATION
     Dosage: Dosage Form: Unspecified
     Route: 065
     Dates: start: 201104
  2. EPREX [Suspect]
     Indication: RENAL FAILURE
     Route: 058
     Dates: start: 20120416, end: 20120926
  3. UNKNOWN MEDICATION [Suspect]
     Indication: PRODUCT USED FOR UNKNOWN INDICATION
     Dosage: Dosage Form: Unspecified
     Route: 065
  4. SULFAMETHOXAZOLE [Suspect]
     Indication: PRODUCT USED FOR UNKNOWN INDICATION
     Dosage: Dosage Form: Unspecified
     Route: 065
     Dates: start: 201104
  5. VITAMIN D [Concomitant]
     Indication: VITAMIN D DEFICIENCY
     Dosage: Dosage Form: Unspecified
     Route: 065
     Dates: start: 201201
  6. ACYCLOVIR [Concomitant]
     Indication: HERPES ZOSTER
     Dosage: Dosage Form: Unspecified
     Route: 048
     Dates: start: 201104
  7. ACYCLOVIR [Concomitant]
     Indication: PROPHYLAXIS
     Dosage: Dosage Form: Unspecified
     Route: 048
     Dates: start: 201104
  8. CO-TRIMOXAZOLE [Concomitant]
     Indication: ANTIFUNGAL PROPHYLAXIS
     Dosage: Dosage Form: Unspecified
     Route: 048
     Dates: start: 201104
  9. CIPROFLOXACIN [Concomitant]
     Dosage: Dosage Form: Unspecified
     Route: 048
     Dates: start: 201112
  10. PENICILLIN V [Concomitant]
     Dosage: Dosage Form: Unspecified
     Route: 048
     Dates: start: 201104
  11. SODIUM BICARBONATE [Concomitant]
     Indication: METABOLIC ACIDOSIS
     Dosage: Dosage Form: Unspecified
     Route: 048
     Dates: start: 201206

REACTIONS (5)
  - Death [Fatal]
  - Aplasia pure red cell [Not Recovered/Not Resolved]
  - Renal failure [Unknown]
  - Haemoglobin decreased [Unknown]
  - Hospitalisation [Unknown]
